FAERS Safety Report 7789499-0 (Version None)
Quarter: 2011Q3

REPORT INFORMATION
  Report Type: 
  Country: None (occurrence: None)
  Receive Date: 20110930
  Receipt Date: 20110921
  Transmission Date: 20111222
  Serious: Yes (Hospitalization, Other)
  Sender: FDA-Public Use
  Company Number: MY-JNJFOC-20080105967

PATIENT
  Sex: Male

DRUGS (15)
  1. RISPERDAL [Suspect]
     Indication: BRAIN INJURY
     Route: 048
     Dates: start: 20071104, end: 20080121
  2. SEDATIVE [Suspect]
     Indication: ILL-DEFINED DISORDER
     Route: 065
  3. UNKNOWN MEDICATION [Suspect]
     Indication: PRODUCT USED FOR UNKNOWN INDICATION
     Route: 065
  4. SOLIAN [Suspect]
     Indication: PRODUCT USED FOR UNKNOWN INDICATION
  5. RISPERDAL CONSTA [Suspect]
     Route: 030
     Dates: start: 20071227, end: 20080121
  6. RISPERDAL CONSTA [Suspect]
     Indication: SCHIZOPHRENIA
     Route: 030
     Dates: start: 20071227, end: 20080121
  7. RISPERDAL CONSTA [Suspect]
     Route: 030
     Dates: start: 20080121, end: 20080121
  8. UNSPECIFIED PSYCHIATRIC MEDICATION [Suspect]
     Indication: PRODUCT USED FOR UNKNOWN INDICATION
     Route: 048
     Dates: start: 20060101
  9. RISPERDAL CONSTA [Suspect]
     Route: 030
     Dates: start: 20080121, end: 20080121
  10. RISPERDAL [Suspect]
     Indication: ILL-DEFINED DISORDER
     Route: 065
  11. SEROQUEL [Suspect]
     Indication: PRODUCT USED FOR UNKNOWN INDICATION
     Route: 065
  12. RISPERDAL [Suspect]
     Indication: SCHIZOPHRENIA
     Route: 048
     Dates: start: 20071104, end: 20080121
  13. RISPERDAL CONSTA [Suspect]
     Indication: BRAIN INJURY
     Route: 030
     Dates: start: 20071104
  14. RISPERDAL CONSTA [Suspect]
     Route: 030
     Dates: start: 20071104
  15. OLANZAPINE [Suspect]
     Indication: ILL-DEFINED DISORDER
     Route: 065
     Dates: start: 20071104, end: 20080121

REACTIONS (50)
  - DRUG INEFFECTIVE [None]
  - WEIGHT INCREASED [None]
  - DIZZINESS [None]
  - RESTLESSNESS [None]
  - RASH [None]
  - HYPERTENSION [None]
  - UNEVALUABLE EVENT [None]
  - FATIGUE [None]
  - STRESS [None]
  - SWELLING FACE [None]
  - ABDOMINAL DISTENSION [None]
  - VOMITING [None]
  - PRODUCT QUALITY ISSUE [None]
  - AGITATION [None]
  - SKIN STRIAE [None]
  - RESTLESS LEGS SYNDROME [None]
  - NAUSEA [None]
  - AMNESIA [None]
  - HYPERSOMNIA [None]
  - COORDINATION ABNORMAL [None]
  - SWELLING [None]
  - DRUG ABUSE [None]
  - FEELING ABNORMAL [None]
  - ANXIETY [None]
  - OEDEMA PERIPHERAL [None]
  - SCAR [None]
  - DRY MOUTH [None]
  - DYSURIA [None]
  - ABDOMINAL DISCOMFORT [None]
  - COGNITIVE DISORDER [None]
  - AGGRESSION [None]
  - NERVOUS SYSTEM DISORDER [None]
  - OVERDOSE [None]
  - MUSCULOSKELETAL STIFFNESS [None]
  - SKIN DISORDER [None]
  - CONFUSIONAL STATE [None]
  - INTESTINAL HAEMORRHAGE [None]
  - DRY SKIN [None]
  - TREMOR [None]
  - HAEMATOCHEZIA [None]
  - RECTAL HAEMORRHAGE [None]
  - ANGER [None]
  - VISION BLURRED [None]
  - DIARRHOEA [None]
  - DECREASED ACTIVITY [None]
  - NEUROLEPTIC MALIGNANT SYNDROME [None]
  - INTENTIONAL DRUG MISUSE [None]
  - DEPRESSED MOOD [None]
  - ABNORMAL BEHAVIOUR [None]
  - MEDICATION ERROR [None]
